FAERS Safety Report 12363447 (Version 2)
Quarter: 2019Q4

REPORT INFORMATION
  Report Type: Spontaneous
  Country: US (occurrence: US)
  Receive Date: 20160512
  Receipt Date: 20191216
  Transmission Date: 20200122
  Serious: No
  Sender: FDA-Public Use
  Company Number: US-UCBSA-2015011761

PATIENT
  Age: 35 Year
  Sex: Female
  Weight: 72.72 kg

DRUGS (13)
  1. SUDAFED [Concomitant]
     Active Substance: PSEUDOEPHEDRINE HYDROCHLORIDE
     Dosage: 1 DF, ONCE DAILY (QD)
     Route: 048
     Dates: start: 20150330, end: 20150330
  2. ALBUTEROL. [Concomitant]
     Active Substance: ALBUTEROL
     Indication: WHEEZING
     Dosage: UNK, AS NEEDED (PRN)
     Dates: start: 20150330, end: 20150412
  3. CEPHALEXIN. [Concomitant]
     Active Substance: CEPHALEXIN
     Indication: MASTITIS
     Dosage: UNK
     Dates: start: 20150507
  4. BACTRIM DS [Concomitant]
     Active Substance: SULFAMETHOXAZOLE\TRIMETHOPRIM
     Indication: MASTITIS
     Dosage: UNK
     Dates: start: 20150506, end: 20150507
  5. CIMZIA [Suspect]
     Active Substance: CERTOLIZUMAB PEGOL
     Indication: CROHN^S DISEASE
     Dosage: 200 MG, EV 2 WEEKS(QOW)
     Route: 058
     Dates: start: 201005
  6. TUMS [Concomitant]
     Active Substance: CALCIUM CARBONATE
     Indication: DYSPEPSIA
     Dosage: UNK, AS NEEDED (PRN)
     Route: 048
     Dates: start: 201411
  7. FISH OIL [Concomitant]
     Active Substance: FISH OIL
     Indication: PREGNANCY
     Dosage: 1 DF, ONCE DAILY (QD)
     Route: 048
     Dates: start: 201403
  8. VITAMIN D [Concomitant]
     Active Substance: VITAMIN D NOS
     Indication: OSTEOPENIA
     Dosage: 1 DF, ONCE DAILY (QD)
     Route: 048
     Dates: start: 201403
  9. TYLENOL [Concomitant]
     Active Substance: ACETAMINOPHEN
     Indication: PYREXIA
  10. ROBITUSSIN (GUAIFENESIN) [Concomitant]
     Active Substance: GUAIFENESIN
     Indication: COUGH
     Dosage: UNK, AS NEEDED (PRN)
     Route: 048
     Dates: start: 20150330, end: 20150404
  11. PRENATAL VITAMINS [Concomitant]
     Active Substance: VITAMINS
     Indication: PREGNANCY
     Dosage: 1 DF, ONCE DAILY (QD)
     Route: 048
     Dates: start: 201403
  12. TYLENOL [Concomitant]
     Active Substance: ACETAMINOPHEN
     Indication: PAIN
     Dosage: UNK, AS NEEDED (PRN)
     Route: 048
     Dates: start: 20150330
  13. LIDOCAINE. [Concomitant]
     Active Substance: LIDOCAINE
     Indication: ABSCESS
     Dosage: UNK
     Dates: start: 20150507

REACTIONS (4)
  - Upper respiratory tract infection [Recovered/Resolved]
  - Maternal exposure during breast feeding [Unknown]
  - Maternal exposure during pregnancy [Unknown]
  - Mastitis [Recovering/Resolving]

NARRATIVE: CASE EVENT DATE: 20150330
